FAERS Safety Report 9720081 (Version 1)
Quarter: 2013Q4

REPORT INFORMATION
  Report Type: Spontaneous
  Country: FR (occurrence: FR)
  Receive Date: 20131128
  Receipt Date: 20131128
  Transmission Date: 20140711
  Serious: Yes (Hospitalization)
  Sender: FDA-Public Use
  Company Number: ALCN2013FR005950

PATIENT
  Age: 68 Year
  Sex: Male

DRUGS (8)
  1. TOBREX [Suspect]
     Dosage: 1 DF, TID
     Route: 047
     Dates: start: 20131017
  2. BACTRIM [Suspect]
     Indication: BACTERIAL PYELONEPHRITIS
     Dosage: 2 DF, BID
     Route: 042
     Dates: start: 20131011, end: 20131024
  3. LOVENOX [Suspect]
     Indication: THROMBOSIS PROPHYLAXIS
     Dosage: 0.4 ML, QD
     Dates: start: 20131003
  4. KARDEGIC [Suspect]
     Indication: ISCHAEMIC STROKE
     Dosage: 160 MG, QD
     Route: 048
     Dates: start: 20131014
  5. PERINDOPRIL [Suspect]
     Indication: ISCHAEMIC STROKE
     Dosage: 2 MG, QD
     Route: 048
     Dates: start: 20131015, end: 20131021
  6. TAHOR [Suspect]
     Indication: ISCHAEMIC STROKE
     Dosage: 40 MG, QD
     Route: 048
     Dates: start: 20131014
  7. LYRICA [Suspect]
     Indication: NEUROPATHY PERIPHERAL
     Dosage: 1 DF, BID
     Route: 048
     Dates: start: 20131014
  8. PERFALGAN [Suspect]
     Dosage: 100 ML, 4 TIMES DAILY
     Route: 042
     Dates: start: 20131009

REACTIONS (1)
  - Drug reaction with eosinophilia and systemic symptoms [Unknown]
